FAERS Safety Report 4984203-3 (Version None)
Quarter: 2006Q2

REPORT INFORMATION
  Report Type: 
  Country: None (occurrence: None)
  Receive Date: 20060427
  Receipt Date: 20060420
  Transmission Date: 20061013
  Serious: Yes (Death, Hospitalization)
  Sender: FDA-Public Use
  Company Number: DE-ABBOTT-06P-062-0331358-00

PATIENT
  Age: 34 Year
  Sex: Female

DRUGS (3)
  1. KALETRA [Suspect]
     Indication: HIV INFECTION
     Route: 048
     Dates: start: 20011023
  2. STAVUDINE [Concomitant]
     Indication: HIV INFECTION
     Route: 048
  3. LAMIVUDINE [Concomitant]
     Indication: HIV INFECTION
     Route: 048

REACTIONS (1)
  - RENAL FAILURE ACUTE [None]
